FAERS Safety Report 17812025 (Version 1)
Quarter: 2020Q2

REPORT INFORMATION
  Report Type: Spontaneous
  Country: CA (occurrence: CA)
  Receive Date: 20200521
  Receipt Date: 20200521
  Transmission Date: 20200714
  Serious: Yes (Hospitalization)
  Sender: FDA-Public Use
  Company Number: CA-PFIZER INC-2020193935

PATIENT
  Age: 52 Year
  Sex: Female

DRUGS (6)
  1. METRONIDAZOLE. [Concomitant]
     Active Substance: METRONIDAZOLE
     Indication: PERIORBITAL CELLULITIS
     Dosage: 500 MG, 3X/DAY (OVER A 3-WEEK PERIOD)
     Route: 042
  2. VANCOMYCIN HCL [Suspect]
     Active Substance: VANCOMYCIN HYDROCHLORIDE
     Indication: PERIORBITAL CELLULITIS
     Dosage: 1 G, 2X/DAY (OVER A 3-WEEK PERIOD)
     Route: 042
  3. METHAZOLAMIDE. [Concomitant]
     Active Substance: METHAZOLAMIDE
     Indication: PERIORBITAL CELLULITIS
     Dosage: 50 MG, 3X/DAY
     Route: 048
  4. VANCOMYCIN HYDROCHLORIDE. [Suspect]
     Active Substance: VANCOMYCIN HYDROCHLORIDE
     Indication: PERIORBITAL CELLULITIS
     Dosage: 14 MG/ML, 2X/DAY, (OPHTHALMIC SOLUTION)
     Route: 047
  5. MOXIFLOXACIN. [Suspect]
     Active Substance: MOXIFLOXACIN
     Indication: PERIORBITAL CELLULITIS
     Dosage: 0.5%, 2X/DAY
     Route: 047
  6. CIPROFLOXACIN. [Concomitant]
     Active Substance: CIPROFLOXACIN
     Indication: PERIORBITAL CELLULITIS
     Dosage: 400 MG, 2X/DAY (OVER A 3-WEEK PERIOD)
     Route: 042

REACTIONS (2)
  - Pyrexia [Unknown]
  - Drug intolerance [Unknown]
